FAERS Safety Report 6126385-6 (Version None)
Quarter: 2009Q1

REPORT INFORMATION
  Report Type: 
  Country: None (occurrence: None)
  Receive Date: 20090320
  Receipt Date: 20090311
  Transmission Date: 20090719
  Serious: Yes (Hospitalization, Other)
  Sender: FDA-Public Use
  Company Number: JP-ALLERGAN-0903694US

PATIENT
  Sex: Male
  Weight: 59 kg

DRUGS (5)
  1. ALESION TABLET [Suspect]
     Indication: URTICARIA
     Dosage: 20 MG, QD
     Route: 048
     Dates: start: 20060822, end: 20060904
  2. ALLEGRA [Suspect]
     Indication: URTICARIA
     Dosage: 120 MG, QD
     Route: 048
     Dates: start: 20060822, end: 20060904
  3. NEOMALLERMIN [Suspect]
     Indication: URTICARIA
     Dosage: 6 MG, UNK
     Route: 048
     Dates: start: 20060822, end: 20060822
  4. HOMOCLOMIN [Suspect]
     Indication: URTICARIA
     Dosage: 60 MG, QD
     Route: 048
     Dates: start: 20060822, end: 20060904
  5. TAGAMET [Suspect]
     Indication: URTICARIA
     Dosage: 600 MG, QD
     Route: 048
     Dates: start: 20060822, end: 20060904

REACTIONS (1)
  - BRUGADA SYNDROME [None]
